FAERS Safety Report 9937922 (Version 2)
Quarter: 2014Q1

REPORT INFORMATION
  Report Type: Spontaneous
  Country: FR (occurrence: FR)
  Receive Date: 20140303
  Receipt Date: 20140303
  Transmission Date: 20141002
  Serious: Yes (Other)
  Sender: FDA-Public Use
  Company Number: FR-009507513-1402FRA002444

PATIENT
  Sex: Male

DRUGS (4)
  1. NASONEX [Suspect]
     Indication: NASAL POLYPS
     Dosage: 2 DF, BID
     Route: 055
     Dates: start: 201302
  2. AERIUS [Concomitant]
     Route: 048
  3. KESTIN [Concomitant]
     Dosage: 1 DF, QD
     Route: 048
     Dates: start: 20130314
  4. LEVOCABASTINE HYDROCHLORIDE [Concomitant]
     Dosage: 1 DF, BID
     Route: 047
     Dates: start: 20130319

REACTIONS (2)
  - Dry eye [Unknown]
  - Keratitis [Unknown]
